FAERS Safety Report 11745638 (Version 1)
Quarter: 2015Q4

REPORT INFORMATION
  Report Type: Report from Study
  Country: US (occurrence: US)
  Receive Date: 20151117
  Receipt Date: 20151117
  Transmission Date: 20160304
  Serious: Yes (Other)
  Sender: FDA-Public Use
  Company Number: PHEH2015US023595

PATIENT
  Sex: Female
  Weight: 97.96 kg

DRUGS (1)
  1. GILENYA [Suspect]
     Active Substance: FINGOLIMOD HYDROCHLORIDE
     Indication: MULTIPLE SCLEROSIS
     Dosage: 0.5 MG, QD
     Route: 048

REACTIONS (8)
  - Multiple sclerosis relapse [Recovering/Resolving]
  - Central nervous system lesion [Recovering/Resolving]
  - Balance disorder [Unknown]
  - Vision blurred [Recovering/Resolving]
  - Hyperreflexia [Unknown]
  - Blood pressure increased [Unknown]
  - Optic neuritis [Recovering/Resolving]
  - Hypoaesthesia [Recovering/Resolving]
